FAERS Safety Report 6534601-1 (Version None)
Quarter: 2010Q1

REPORT INFORMATION
  Report Type: 
  Country: None (occurrence: None)
  Receive Date: 20100112
  Receipt Date: 20100111
  Transmission Date: 20100710
  Serious: Yes (Other)
  Sender: FDA-Public Use
  Company Number: A0838758A

PATIENT
  Age: 77 Year
  Sex: Female

DRUGS (7)
  1. ADVAIR DISKUS 100/50 [Suspect]
     Indication: CHRONIC OBSTRUCTIVE PULMONARY DISEASE
     Dosage: 1PUFF TWICE PER DAY
     Route: 055
     Dates: start: 20080101
  2. PANTOPRAZOLE [Concomitant]
  3. CALCITRIOL [Concomitant]
  4. CALTRATE [Concomitant]
  5. VITAMIN C [Concomitant]
  6. VITAMIN E [Concomitant]
  7. MULTI-VITAMIN [Concomitant]

REACTIONS (4)
  - CATARACT [None]
  - CATARACT OPERATION [None]
  - LUNG INFECTION [None]
  - VISION BLURRED [None]
